FAERS Safety Report 5767374-0 (Version None)
Quarter: 2008Q2

REPORT INFORMATION
  Report Type: 
  Country: None (occurrence: None)
  Receive Date: 20080612
  Receipt Date: 20080605
  Transmission Date: 20081010
  Serious: Yes (Other)
  Sender: FDA-Public Use
  Company Number: B0428483A

PATIENT
  Sex: Male

DRUGS (10)
  1. SEROXAT [Suspect]
     Dates: start: 20000308
  2. EFFEXOR [Concomitant]
     Dates: start: 20000101
  3. HALOPERIDOL [Concomitant]
  4. LORAZEPAM [Concomitant]
  5. THIORIDAZINE HCL [Concomitant]
  6. PROCYCLIDINE HYDROCHLORIDE 2MG TAB [Concomitant]
  7. NITRAZEPAM [Concomitant]
  8. CHINESE HERBAL MEDICINE [Concomitant]
  9. MIRTAZAPINE [Concomitant]
  10. ZALEPLON [Concomitant]

REACTIONS (23)
  - AFFECTIVE DISORDER [None]
  - AGGRESSION [None]
  - AGITATION [None]
  - CONFUSIONAL STATE [None]
  - DEPRESSION [None]
  - DISTURBANCE IN ATTENTION [None]
  - DRUG WITHDRAWAL SYNDROME [None]
  - FATIGUE [None]
  - FLIGHT OF IDEAS [None]
  - HALLUCINATION, AUDITORY [None]
  - HEADACHE [None]
  - HYPERHIDROSIS [None]
  - HYPOMANIA [None]
  - INFLUENZA [None]
  - INSOMNIA [None]
  - IRRITABILITY [None]
  - LETHARGY [None]
  - MEMORY IMPAIRMENT [None]
  - NIGHTMARE [None]
  - PARANOIA [None]
  - PRESSURE OF SPEECH [None]
  - SLEEP DISORDER [None]
  - SUICIDAL IDEATION [None]
